FAERS Safety Report 23146124 (Version 1)
Quarter: 2023Q4

REPORT INFORMATION
  Report Type: Spontaneous
  Country: DE (occurrence: DE)
  Receive Date: 20231104
  Receipt Date: 20231104
  Transmission Date: 20240109
  Serious: Yes (Other)
  Sender: FDA-Public Use
  Company Number: DE-TORRENT-00025580

PATIENT
  Age: 57 Year
  Sex: Female

DRUGS (2)
  1. ETORICOXIB [Suspect]
     Active Substance: ETORICOXIB
     Indication: Product used for unknown indication
     Dosage: UNKNOWN
     Route: 065
  2. CELECOXIB [Suspect]
     Active Substance: CELECOXIB
     Indication: Product used for unknown indication
     Dosage: 100 MG
     Route: 065

REACTIONS (8)
  - Arrhythmia [Unknown]
  - Pruritus [Unknown]
  - Swelling [Unknown]
  - Dyspnoea [Unknown]
  - Erythema [Unknown]
  - Pulmonary pain [Unknown]
  - Hypersensitivity [Unknown]
  - Rash erythematous [Unknown]
